FAERS Safety Report 6550802-0 (Version None)
Quarter: 2010Q1

REPORT INFORMATION
  Report Type: 
  Country: None (occurrence: None)
  Receive Date: 20100125
  Receipt Date: 20090604
  Transmission Date: 20100710
  Serious: Yes (Hospitalization)
  Sender: FDA-Public Use
  Company Number: US-TYCO HEALTHCARE/MALLINCKRODT-T200901113

PATIENT
  Sex: Female
  Weight: 14.603 kg

DRUGS (4)
  1. OPTIRAY 350 [Suspect]
     Indication: ANGIOGRAM CEREBRAL
     Dosage: 5 ML, SINGLE
     Route: 042
     Dates: start: 20090521, end: 20090521
  2. SEVOFLURANE [Concomitant]
     Indication: ANAESTHESIA
     Dosage: 56.29 ML, SINGLE
     Route: 042
     Dates: start: 20090521, end: 20090521
  3. PROPOFOL [Concomitant]
     Indication: ANAESTHESIA
     Dosage: 70 MG, SINGLE
     Route: 042
     Dates: start: 20090521, end: 20090521
  4. VECURONIUM BROMIDE [Concomitant]
     Indication: ANAESTHESIA
     Dosage: 1.5 MG, SINGLE
     Route: 042
     Dates: start: 20090521, end: 20090521

REACTIONS (2)
  - HYPOTENSION [None]
  - OXYGEN SATURATION DECREASED [None]
